FAERS Safety Report 8979203 (Version 2)
Quarter: 2013Q1

REPORT INFORMATION
  Report Type: Report from Study
  Country: US (occurrence: US)
  Receive Date: 20121221
  Receipt Date: 20130118
  Transmission Date: 20140127
  Serious: Yes (Hospitalization)
  Sender: FDA-Public Use
  Company Number: US-ABBOTT-12P-163-1021578-00

PATIENT
  Age: 57 Year
  Sex: Female

DRUGS (20)
  1. HUMIRA [Suspect]
     Indication: CROHN^S DISEASE
     Dosage: 160 MG (BASELINE)
     Route: 058
     Dates: start: 20080414, end: 20080414
  2. HUMIRA [Suspect]
     Dosage: WEEK 2
     Route: 058
  3. HUMIRA [Suspect]
     Route: 058
  4. BUDESONIDE [Concomitant]
     Indication: CROHN^S DISEASE
  5. ELMIRON [Concomitant]
     Indication: CYSTITIS INTERSTITIAL
  6. COLAZAL [Concomitant]
     Indication: CROHN^S DISEASE
     Dates: start: 1999
  7. VICODIN ES [Concomitant]
     Indication: ABDOMINAL PAIN
     Dosage: 7.5/750 MG
     Dates: start: 200610
  8. VICODIN ES [Concomitant]
     Indication: CROHN^S DISEASE
  9. LOMOTIL [Concomitant]
     Indication: DIARRHOEA
     Dates: start: 200606
  10. LOMOTIL [Concomitant]
     Indication: CROHN^S DISEASE
  11. DICYCLOMINE [Concomitant]
     Indication: IRRITABLE BOWEL SYNDROME
     Dates: start: 200607
  12. VITAMIN B12 [Concomitant]
     Indication: ANAEMIA
     Dates: start: 200607
  13. PREMARIN [Concomitant]
     Indication: HORMONE REPLACEMENT THERAPY
     Dates: start: 200610
  14. CELEBREX [Concomitant]
     Indication: FIBROMYALGIA
  15. CLORAZEPATE [Concomitant]
     Indication: ANXIETY
  16. XIFAXAN [Concomitant]
     Indication: CROHN^S DISEASE
     Dates: start: 20080215
  17. ENTOCORT [Concomitant]
     Indication: CROHN^S DISEASE
  18. TESTOSTERONE [Concomitant]
     Indication: HORMONE REPLACEMENT THERAPY
  19. VITAMIN D [Concomitant]
     Indication: ANAEMIA
     Route: 042
     Dates: start: 20080407
  20. CREON [Concomitant]
     Indication: PANCREATIC INSUFFICIENCY
     Dates: start: 20080407

REACTIONS (1)
  - Crohn^s disease [Recovered/Resolved]
